FAERS Safety Report 9435312 (Version 6)
Quarter: 2017Q4

REPORT INFORMATION
  Report Type: Spontaneous
  Country: JP (occurrence: JP)
  Receive Date: 20130801
  Receipt Date: 20171017
  Transmission Date: 20180321
  Serious: Yes (Death, Hospitalization, Disabling, Other)
  Sender: FDA-Public Use
  Company Number: JP-BAYER-2013-082809

PATIENT
  Age: 40 Year
  Sex: Male
  Weight: 76 kg

DRUGS (9)
  1. REBAMIPIDE [Concomitant]
     Active Substance: REBAMIPIDE
     Indication: GASTRITIS PROPHYLAXIS
     Dosage: DAILY DOSE 300 MG
     Route: 048
     Dates: start: 20130423, end: 20130721
  2. OXYCONTIN [Concomitant]
     Active Substance: OXYCODONE HYDROCHLORIDE
     Indication: COLON CANCER
     Dosage: DAILY DOSE 120 MG
     Route: 048
     Dates: start: 20130612, end: 20130721
  3. STIVARGA [Suspect]
     Active Substance: REGORAFENIB
     Indication: COLON CANCER
     Dosage: 160 MG, QD
     Route: 048
     Dates: start: 20130613, end: 20130703
  4. STIVARGA [Suspect]
     Active Substance: REGORAFENIB
     Indication: COLON CANCER
     Dosage: 120 MG, QD
     Route: 048
     Dates: start: 20130712, end: 20130722
  5. PYDOXAL [Concomitant]
     Active Substance: PYRIDOXAL
     Indication: DRUG TOXICITY PROPHYLAXIS
     Dosage: DAILY DOSE 60 MG
     Route: 048
     Dates: start: 20130613, end: 20130721
  6. PREDONINE [Concomitant]
     Active Substance: PREDNISOLONE
     Indication: COLON CANCER
     Dosage: DAILY DOSE 10 MG
     Route: 048
     Dates: start: 20130627, end: 20130721
  7. TAKEPRON [Concomitant]
     Active Substance: LANSOPRAZOLE
     Indication: GASTRITIS PROPHYLAXIS
     Dosage: DAILY DOSE 15 MG
     Route: 048
     Dates: start: 20120927, end: 20130721
  8. LOXOPROFEN [Concomitant]
     Active Substance: LOXOPROFEN
     Indication: COLON CANCER
     Dosage: DAILY DOSE 180 MG
     Route: 048
     Dates: start: 20130423, end: 20130721
  9. MAGNESIUM OXIDE. [Concomitant]
     Active Substance: MAGNESIUM OXIDE
     Dosage: DAILY DOSE 2 G
     Route: 048
     Dates: start: 20130620, end: 20130721

REACTIONS (8)
  - Stomatitis [Recovering/Resolving]
  - Colon cancer [Fatal]
  - Cerebral infarction [Recovered/Resolved with Sequelae]
  - Scrotal ulcer [Recovering/Resolving]
  - Rash [Recovering/Resolving]
  - Trousseau^s syndrome [Not Recovered/Not Resolved]
  - Genital ulceration [Recovered/Resolved]
  - Respiratory failure [Fatal]

NARRATIVE: CASE EVENT DATE: 20130628
